FAERS Safety Report 10563551 (Version 2)
Quarter: 2014Q4

REPORT INFORMATION
  Report Type: Report from Study
  Country: NL (occurrence: NL)
  Receive Date: 20141104
  Receipt Date: 20141104
  Transmission Date: 20150529
  Serious: Yes (Other)
  Sender: FDA-Public Use
  Company Number: NL-BAYER-2014-072122

PATIENT
  Age: 47 Year
  Sex: Male

DRUGS (1)
  1. BETAFERON [Suspect]
     Active Substance: INTERFERON BETA-1B
     Indication: RELAPSING-REMITTING MULTIPLE SCLEROSIS
     Dosage: 250 ?G, QOD
     Dates: start: 20140417

REACTIONS (5)
  - Balance disorder [Not Recovered/Not Resolved]
  - Condition aggravated [None]
  - Gait disturbance [Not Recovered/Not Resolved]
  - Influenza like illness [Not Recovered/Not Resolved]
  - Relapsing-remitting multiple sclerosis [Not Recovered/Not Resolved]

NARRATIVE: CASE EVENT DATE: 20140419
